FAERS Safety Report 7470104-8 (Version None)
Quarter: 2011Q2

REPORT INFORMATION
  Report Type: 
  Country: None (occurrence: None)
  Receive Date: 20110510
  Receipt Date: 20110429
  Transmission Date: 20111010
  Serious: Yes (Hospitalization)
  Sender: FDA-Public Use
  Company Number: A0889280A

PATIENT
  Age: 64 Year
  Sex: Male

DRUGS (2)
  1. AVANDIA [Suspect]
     Indication: DIABETES MELLITUS
     Dosage: 4MG TWICE PER DAY
     Route: 048
     Dates: start: 20040701, end: 20100201
  2. AVANDAMET [Suspect]
     Route: 048

REACTIONS (5)
  - DYSPNOEA [None]
  - ANGINA PECTORIS [None]
  - SICK SINUS SYNDROME [None]
  - FLUID RETENTION [None]
  - CORONARY ARTERY DISEASE [None]
